FAERS Safety Report 4890777-3 (Version None)
Quarter: 2006Q1

REPORT INFORMATION
  Report Type: 
  Country: None (occurrence: None)
  Receive Date: 20060123
  Receipt Date: 20060113
  Transmission Date: 20060701
  Serious: Yes (Hospitalization)
  Sender: FDA-Public Use
  Company Number: 2006-BP-00341RO

PATIENT
  Age: 61 Year
  Sex: Male

DRUGS (5)
  1. PREDNISONE TAB [Suspect]
     Indication: PROSTATE CANCER
     Dosage: 10 MG DAILY, PO
     Route: 048
     Dates: start: 20051020, end: 20051130
  2. IROFULVEN (IROFULVEN) [Suspect]
     Indication: PROSTATE CANCER
     Dosage: 0.4 MG/KG (33.6 MG) DAY 1 AND 15 OF 28 DAY CYCLE (IV)
     Route: 042
     Dates: start: 20051020, end: 20051130
  3. CAPECITABINE (CAPECITABINE) [Suspect]
     Indication: PROSTATE CANCER
     Dosage: 1000 MG/M^2 (5400 MG) BID DAY 1 TO 14 AND ONCE ON DAY 15, IV
     Route: 042
     Dates: start: 20051020, end: 20051130
  4. DEXAMETHASONE [Concomitant]
  5. ACETAMINOPHEN [Concomitant]

REACTIONS (5)
  - DISSEMINATED INTRAVASCULAR COAGULATION [None]
  - EPISTAXIS [None]
  - HAEMOGLOBIN DECREASED [None]
  - THROMBOCYTOPENIA [None]
  - WOUND SECRETION [None]
